FAERS Safety Report 5661173-6 (Version None)
Quarter: 2008Q1

REPORT INFORMATION
  Report Type: 
  Country: None (occurrence: None)
  Receive Date: 20080306
  Receipt Date: 20080226
  Transmission Date: 20080703
  Serious: Yes (Life-Threatening)
  Sender: FDA-Public Use
  Company Number: 100#03#2008-01095

PATIENT
  Age: 32 Year
  Sex: Female

DRUGS (2)
  1. CITALOPRAM HYDROBROMIDE [Suspect]
     Indication: DEPRESSION
     Dosage: 20 MG ONCE
     Dates: end: 20060601
  2. TEGRETOL [Suspect]
     Indication: EPILEPSY
     Dosage: 2.5 MG TWICE
     Dates: start: 20070809

REACTIONS (2)
  - APLASTIC ANAEMIA [None]
  - VAGINAL HAEMORRHAGE [None]
